FAERS Safety Report 18966376 (Version 2)
Quarter: 2021Q1

REPORT INFORMATION
  Report Type: Report from Study
  Country: CA (occurrence: CA)
  Receive Date: 20210303
  Receipt Date: 20210318
  Transmission Date: 20210420
  Serious: Yes (Hospitalization)
  Sender: FDA-Public Use
  Company Number: CA-B.I. PHARMACEUTICALS,INC./RIDGEFIELD-2019-BI-031982

PATIENT
  Age: 86 Year
  Sex: Male
  Weight: 64 kg

DRUGS (7)
  1. LASIX [Suspect]
     Active Substance: FUROSEMIDE
     Route: 048
     Dates: start: 20190717
  2. LASIX [Suspect]
     Active Substance: FUROSEMIDE
     Indication: CARDIAC FAILURE
     Route: 048
     Dates: start: 20190516, end: 20190705
  3. LASIX [Suspect]
     Active Substance: FUROSEMIDE
     Route: 048
     Dates: start: 20190705, end: 20190717
  4. BISOPROLOL [Concomitant]
     Active Substance: BISOPROLOL
     Indication: CARDIAC FAILURE
     Route: 048
     Dates: start: 20190409
  5. SPIRONOLACTONE. [Suspect]
     Active Substance: SPIRONOLACTONE
     Indication: CARDIAC FAILURE
     Route: 048
     Dates: start: 20190411, end: 20190818
  6. GABAPENTIN. [Concomitant]
     Active Substance: GABAPENTIN
     Indication: ARTHRALGIA
     Route: 048
     Dates: start: 20190717
  7. PLACEBO [Suspect]
     Active Substance: UNSPECIFIED INGREDIENT
     Indication: CARDIAC FAILURE
     Route: 048
     Dates: start: 20190424

REACTIONS (3)
  - Gout [Recovered/Resolved]
  - Renal failure [Recovered/Resolved]
  - Dehydration [Recovered/Resolved]

NARRATIVE: CASE EVENT DATE: 20190710
